FAERS Safety Report 7570218-8 (Version None)
Quarter: 2011Q2

REPORT INFORMATION
  Report Type: 
  Country: None (occurrence: None)
  Receive Date: 20110624
  Receipt Date: 20110421
  Transmission Date: 20111010
  Serious: Yes (Other)
  Sender: FDA-Public Use
  Company Number: CZ-PFIZER INC-2011135322

PATIENT
  Sex: Male

DRUGS (2)
  1. ENOXAPARIN SODIUM [Concomitant]
     Indication: THROMBOSIS
  2. SUTENT [Suspect]
     Indication: METASTATIC RENAL CELL CARCINOMA
     Dosage: 50 MG, UNK

REACTIONS (1)
  - MOUTH HAEMORRHAGE [None]
